FAERS Safety Report 6772455-9 (Version None)
Quarter: 2010Q2

REPORT INFORMATION
  Report Type: 
  Country: None (occurrence: None)
  Receive Date: 20100616
  Receipt Date: 20090519
  Transmission Date: 20101027
  Serious: No
  Sender: FDA-Public Use
  Company Number: US-ASTRAZENECA-2009UW13002

PATIENT
  Sex: Female
  Weight: 68 kg

DRUGS (5)
  1. PULMICORT FLEXHALER [Suspect]
     Indication: ASTHMA
     Dosage: 2 PUFFS
     Route: 055
     Dates: start: 20090512
  2. ASTELIN [Concomitant]
  3. NASONEX [Concomitant]
  4. LOVASTATIN [Concomitant]
  5. METOPROLOL [Concomitant]

REACTIONS (4)
  - COUGH [None]
  - PRODUCT TASTE ABNORMAL [None]
  - RETCHING [None]
  - VOMITING [None]
